FAERS Safety Report 7963275-8 (Version None)
Quarter: 2011Q4

REPORT INFORMATION
  Report Type: 
  Country: None (occurrence: None)
  Receive Date: 20111208
  Receipt Date: 20111205
  Transmission Date: 20120403
  Serious: No
  Sender: FDA-Public Use
  Company Number: US-BIOGENIDEC-2011BI045622

PATIENT
  Sex: Male

DRUGS (1)
  1. TYSABRI [Suspect]
     Indication: MULTIPLE SCLEROSIS
     Route: 042
     Dates: start: 20110114, end: 20111001

REACTIONS (5)
  - FATIGUE [None]
  - DISTURBANCE IN ATTENTION [None]
  - BALANCE DISORDER [None]
  - DEPRESSION [None]
  - GENERAL SYMPTOM [None]
